FAERS Safety Report 24075230 (Version 1)
Quarter: 2024Q3

REPORT INFORMATION
  Report Type: Other
  Country: US (occurrence: US)
  Receive Date: 20240710
  Receipt Date: 20240710
  Transmission Date: 20241017
  Serious: Yes (Hospitalization, Other)
  Sender: ALVOGEN
  Company Number: US-ALVOGEN-2024095012

PATIENT
  Age: 27 Year
  Sex: Female

DRUGS (2)
  1. FENTANYL [Suspect]
     Active Substance: FENTANYL\FENTANYL CITRATE
     Indication: Product used for unknown indication
  2. HEROIN [Suspect]
     Active Substance: DIAMORPHINE
     Indication: Product used for unknown indication
     Route: 042

REACTIONS (9)
  - Toxicity to various agents [Recovering/Resolving]
  - Rhabdomyolysis [Recovering/Resolving]
  - Multiple organ dysfunction syndrome [Recovering/Resolving]
  - Muscle necrosis [Recovering/Resolving]
  - Cerebral infarction [Recovering/Resolving]
  - Brain oedema [Recovering/Resolving]
  - Deafness bilateral [Recovering/Resolving]
  - Abortion spontaneous [Unknown]
  - Maternal exposure during pregnancy [Unknown]
